FAERS Safety Report 9085542 (Version 2)
Quarter: 2013Q2

REPORT INFORMATION
  Report Type: Spontaneous
  Country: US (occurrence: US)
  Receive Date: 20130131
  Receipt Date: 20130426
  Transmission Date: 20140414
  Serious: No
  Sender: FDA-Public Use
  Company Number: US-BAYER-2013-012798

PATIENT
  Age: 77 Year
  Sex: Female

DRUGS (1)
  1. AVELOX [Suspect]
     Indication: BACTERIAL INFECTION
     Dosage: 400 MG, QD
     Route: 048
     Dates: start: 20130128

REACTIONS (4)
  - Dry throat [Unknown]
  - Cough [Unknown]
  - Sputum increased [Unknown]
  - Product colour issue [None]
